FAERS Safety Report 24435293 (Version 1)
Quarter: 2024Q4

REPORT INFORMATION
  Report Type: Spontaneous
  Country: FR (occurrence: FR)
  Receive Date: 20241015
  Receipt Date: 20241015
  Transmission Date: 20250114
  Serious: Yes (Hospitalization)
  Sender: ACCORD
  Company Number: None

PATIENT
  Age: 74 Year
  Sex: Male
  Weight: 98 kg

DRUGS (3)
  1. CARBOPLATIN [Suspect]
     Active Substance: CARBOPLATIN
     Indication: Lung adenocarcinoma stage III
     Dosage: ACCORD 10 MG/ML, SOLUTION FOR INFUSION
     Dates: start: 20240712, end: 20240712
  2. PEMETREXED [Suspect]
     Active Substance: PEMETREXED
     Indication: Lung adenocarcinoma stage III
     Dosage: 3RD TREATMENT, EVER PHARMA 25 MG/ML, SOLUTION FOR DILUTION FOR INFUSION
     Dates: start: 20240712, end: 20240712
  3. NIVOLUMAB [Suspect]
     Active Substance: NIVOLUMAB
     Indication: Lung adenocarcinoma stage III
     Dosage: 10 MG/ML, CONCENTRATE FOR SOLUTION FOR INFUSION, 3RD TREATMENT
     Dates: start: 20240712, end: 20240712

REACTIONS (1)
  - Dermatitis exfoliative generalised [Recovered/Resolved]

NARRATIVE: CASE EVENT DATE: 20240726
